FAERS Safety Report 25972474 (Version 1)
Quarter: 2025Q4

REPORT INFORMATION
  Report Type: Spontaneous
  Country: US (occurrence: US)
  Receive Date: 20251029
  Receipt Date: 20251029
  Transmission Date: 20260118
  Serious: No
  Sender: CSL BEHRING
  Company Number: US-BEH-2025221963

PATIENT
  Age: 33 Year
  Sex: Female

DRUGS (7)
  1. HIZENTRA [Suspect]
     Active Substance: HUMAN IMMUNOGLOBULIN G
     Indication: Selective IgM immunodeficiency
     Dosage: 1 G, QW 1GM/5ML
     Route: 058
     Dates: start: 20250918
  2. HIZENTRA [Suspect]
     Active Substance: HUMAN IMMUNOGLOBULIN G
     Dosage: 4 G, QW4GM/20ML
     Route: 058
     Dates: start: 20250918
  3. HIZENTRA [Suspect]
     Active Substance: HUMAN IMMUNOGLOBULIN G
     Dosage: UNK
     Route: 065
     Dates: start: 20251012
  4. EPINEPHRINE [Concomitant]
     Active Substance: EPINEPHRINE
     Dosage: 0.3 G  PEN (2=2)
  5. LAMOTRIGINE [Concomitant]
     Active Substance: LAMOTRIGINE
     Dosage: 25 MG
  6. SPIRONOLACTONE [Concomitant]
     Active Substance: SPIRONOLACTONE
     Dosage: 100 MG
  7. WEGOVY [Concomitant]
     Active Substance: SEMAGLUTIDE
     Dosage: 1 MG

REACTIONS (3)
  - Infusion site pain [Not Recovered/Not Resolved]
  - Product use complaint [Unknown]
  - Infusion site urticaria [Not Recovered/Not Resolved]

NARRATIVE: CASE EVENT DATE: 20251012
